FAERS Safety Report 14552751 (Version 1)
Quarter: 2018Q1

REPORT INFORMATION
  Report Type: Report from Study
  Country: US (occurrence: US)
  Receive Date: 20180220
  Receipt Date: 20180220
  Transmission Date: 20180509
  Serious: Yes (Death, Other)
  Sender: FDA-Public Use
  Company Number: US-AUROBINDO-AUR-APL-2018-008731

PATIENT
  Age: 41 Year
  Sex: Male

DRUGS (6)
  1. COBICISTAT [Suspect]
     Active Substance: COBICISTAT
     Indication: ANTIRETROVIRAL THERAPY
     Dosage: UNK
  2. TENOFOVIR DISOPROXIL FUMARATE. [Suspect]
     Active Substance: TENOFOVIR DISOPROXIL FUMARATE
     Indication: ANTIRETROVIRAL THERAPY
  3. DOLUTEGRAVIR [Suspect]
     Active Substance: DOLUTEGRAVIR
     Indication: ANTIRETROVIRAL THERAPY
  4. DARUNAVIR [Suspect]
     Active Substance: DARUNAVIR
     Indication: ANTIRETROVIRAL THERAPY
     Dosage: UNK
  5. FLUCONAZOLE. [Suspect]
     Active Substance: FLUCONAZOLE
     Indication: COCCIDIOIDOMYCOSIS
     Dosage: 1000 MG, ONCE A DAY
  6. EMTRICITABINE [Suspect]
     Active Substance: EMTRICITABINE
     Indication: ANTIRETROVIRAL THERAPY

REACTIONS (8)
  - Seizure [Unknown]
  - Condition aggravated [Fatal]
  - Somnolence [Unknown]
  - Vomiting [Unknown]
  - Coccidioidomycosis [Fatal]
  - Immune reconstitution inflammatory syndrome [Unknown]
  - Nausea [Unknown]
  - Confusional state [Unknown]
